FAERS Safety Report 4463207-3 (Version None)
Quarter: 2004Q3

REPORT INFORMATION
  Report Type: 
  Country: None (occurrence: None)
  Receive Date: 20040930
  Receipt Date: 20040922
  Transmission Date: 20050211
  Serious: Yes (Hospitalization)
  Sender: FDA-Public Use
  Company Number: FR-ROCHE-381275

PATIENT
  Age: 56 Year
  Sex: Male

DRUGS (5)
  1. CLONAZEPAM [Suspect]
     Indication: DRUG USE FOR UNKNOWN INDICATION
     Route: 048
     Dates: start: 20040806, end: 20040820
  2. PROPOFAN [Suspect]
     Route: 054
     Dates: start: 20040809
  3. KETOPROFEN [Suspect]
     Route: 048
     Dates: start: 20040809, end: 20040820
  4. NARAMIG [Suspect]
     Indication: MIGRAINE
     Route: 048
     Dates: start: 20040806, end: 20040809
  5. ACETAMINOPHEN [Concomitant]
     Route: 048
     Dates: start: 20040809, end: 20040820

REACTIONS (1)
  - PANCREATITIS ACUTE [None]
